FAERS Safety Report 9118012 (Version 1)
Quarter: 2013Q1

REPORT INFORMATION
  Report Type: Spontaneous
  Country: GB (occurrence: GB)
  Receive Date: 20130226
  Receipt Date: 20130226
  Transmission Date: 20140127
  Serious: Yes (Life-Threatening, Hospitalization, Other)
  Sender: FDA-Public Use
  Company Number: PHFR2004GB02338

PATIENT
  Sex: Male

DRUGS (3)
  1. CLOZARIL [Suspect]
     Indication: SCHIZOPHRENIA
     Dosage: 300MG/DAY
     Route: 048
     Dates: start: 20010517, end: 20040527
  2. CLOZARIL [Suspect]
     Dosage: 400 MG, PER DAY
     Route: 065
     Dates: start: 20040808, end: 20050602
  3. AMITRIPTYLINE [Concomitant]
     Indication: DEPRESSION
     Dosage: 100 UKN, PER DAY
     Route: 048

REACTIONS (17)
  - Neuroleptic malignant syndrome [Unknown]
  - Blood creatine phosphokinase increased [Not Recovered/Not Resolved]
  - Muscle rigidity [Unknown]
  - Pyrexia [Unknown]
  - White blood cell count increased [Unknown]
  - Convulsion [Unknown]
  - Fall [Unknown]
  - Circulatory collapse [Unknown]
  - Head injury [Unknown]
  - Depressed level of consciousness [Unknown]
  - Catatonia [Unknown]
  - Social avoidant behaviour [Unknown]
  - Neglect of personal appearance [Unknown]
  - Dehydration [Unknown]
  - Delusion [Unknown]
  - Sepsis [Unknown]
  - Thrombocytopenia [Unknown]
